FAERS Safety Report 4970566-1 (Version None)
Quarter: 2006Q2

REPORT INFORMATION
  Report Type: 
  Country: None (occurrence: None)
  Receive Date: 20060412
  Receipt Date: 20050928
  Transmission Date: 20061013
  Serious: Yes (Hospitalization, Other)
  Sender: FDA-Public Use
  Company Number: US-MERCK-0509USA04539

PATIENT
  Age: 37 Year
  Sex: Female
  Weight: 75 kg

DRUGS (34)
  1. CLARITIN [Concomitant]
     Route: 065
  2. LOVASTATIN [Concomitant]
     Route: 065
  3. NEXIUM [Concomitant]
     Route: 065
  4. VITAMINS (UNSPECIFIED) [Concomitant]
     Route: 065
  5. LEXAPRO [Concomitant]
     Route: 065
  6. NITROGLYCERIN [Concomitant]
     Route: 065
  7. [THERAPY UNSPECIFIED] [Concomitant]
     Route: 065
  8. ZANTAC [Concomitant]
     Route: 065
  9. KEPPRA [Concomitant]
     Indication: MIGRAINE
     Route: 065
  10. VIOXX [Suspect]
     Indication: FIBROMYALGIA
     Route: 048
     Dates: start: 19990101, end: 20040901
  11. ALBUTEROL [Concomitant]
     Route: 065
  12. METOPROLOL [Concomitant]
     Route: 065
  13. AMBIEN [Concomitant]
     Route: 065
  14. AMBIEN [Concomitant]
     Route: 065
  15. ALLOPURINOL [Concomitant]
     Route: 065
  16. POTASSIUM CHLORIDE [Concomitant]
     Route: 065
  17. HYDRODIURIL [Concomitant]
     Route: 048
  18. ALLEGRA [Concomitant]
     Route: 065
  19. LASIX [Concomitant]
     Route: 065
  20. LASIX [Concomitant]
     Route: 065
  21. ASPIRIN [Concomitant]
     Route: 065
  22. ACIPHEX [Concomitant]
     Route: 065
  23. PLAVIX [Concomitant]
     Route: 065
  24. LOPRESSOR [Concomitant]
     Route: 065
  25. PRAVACHOL [Concomitant]
     Route: 065
  26. LISINOPRIL [Concomitant]
     Route: 065
  27. LISINOPRIL [Concomitant]
     Route: 065
  28. PAXIL [Concomitant]
     Route: 065
  29. DILACOR XR [Concomitant]
     Route: 065
  30. ISMO [Concomitant]
     Route: 065
  31. ISMO [Concomitant]
     Route: 065
  32. HYDROCHLOROTHIAZIDE AND TRIAMTERENE [Concomitant]
     Route: 065
  33. PREVACID [Concomitant]
     Route: 065
  34. TOPROL-XL [Concomitant]
     Route: 065

REACTIONS (29)
  - ANGINA PECTORIS [None]
  - BRADYCARDIA [None]
  - CARDIAC DISORDER [None]
  - CAROTID ARTERY STENOSIS [None]
  - CEREBROVASCULAR ACCIDENT [None]
  - CHEST PAIN [None]
  - CORONARY ARTERY DISEASE [None]
  - DEPRESSION [None]
  - DIVERTICULITIS [None]
  - DIZZINESS [None]
  - DYSPNOEA [None]
  - FOOT OPERATION [None]
  - GASTRIC ULCER [None]
  - GOUT [None]
  - HEADACHE [None]
  - HEMIPARESIS [None]
  - HYPOTENSION [None]
  - HYPOTHYROIDISM [None]
  - IRRITABLE BOWEL SYNDROME [None]
  - MIGRAINE [None]
  - MITRAL VALVE PROLAPSE [None]
  - MYOCARDIAL INFARCTION [None]
  - OEDEMA PERIPHERAL [None]
  - PAIN IN EXTREMITY [None]
  - PALPITATIONS [None]
  - POLYTRAUMATISM [None]
  - SINUS DISORDER [None]
  - TRANSIENT ISCHAEMIC ATTACK [None]
  - ULCER [None]
